FAERS Safety Report 4861641-0 (Version None)
Quarter: 2005Q4

REPORT INFORMATION
  Report Type: 
  Country: None (occurrence: None)
  Receive Date: 20051130
  Receipt Date: 20050712
  Transmission Date: 20060501
  Serious: Yes (Hospitalization)
  Sender: FDA-Public Use
  Company Number: 200510463BWH

PATIENT
  Age: 43 Year
  Sex: Female
  Weight: 43.0917 kg

DRUGS (2)
  1. CIPRO [Suspect]
     Indication: GASTROINTESTINAL INFECTION
     Dosage: 500 MG, BID ; 500 MG, OM  : ORAL
     Route: 048
     Dates: start: 20031023
  2. CIPRO [Suspect]
     Indication: GASTROINTESTINAL INFECTION
     Dosage: 500 MG, BID ; 500 MG, OM  : ORAL
     Route: 048
     Dates: start: 20031024

REACTIONS (10)
  - ANXIETY [None]
  - ARTHRALGIA [None]
  - HEART RATE INCREASED [None]
  - HYPOAESTHESIA [None]
  - HYPOAESTHESIA ORAL [None]
  - LETHARGY [None]
  - MUSCULOSKELETAL STIFFNESS [None]
  - PAIN [None]
  - PARAESTHESIA [None]
  - PARAESTHESIA ORAL [None]
